FAERS Safety Report 23872078 (Version 1)
Quarter: 2024Q2

REPORT INFORMATION
  Report Type: Spontaneous
  Country: PT (occurrence: PT)
  Receive Date: 20240520
  Receipt Date: 20240520
  Transmission Date: 20240716
  Serious: Yes (Hospitalization, Other)
  Sender: FDA-Public Use
  Company Number: PT-GLAXOSMITHKLINE-PT2024GSK060042

PATIENT

DRUGS (1)
  1. ALBUTEROL [Suspect]
     Active Substance: ALBUTEROL
     Indication: Asthma
     Dosage: 100 UG (USING UP TO 2 FULL INHALERS (400 DOSES)DURING THE WEEK)

REACTIONS (7)
  - Stress cardiomyopathy [Recovering/Resolving]
  - Wheezing [Recovering/Resolving]
  - Myocardial ischaemia [Recovering/Resolving]
  - Systolic dysfunction [Recovering/Resolving]
  - Abnormal precordial movement [Recovering/Resolving]
  - Ventricular hypokinesia [Recovering/Resolving]
  - Ventricular dyskinesia [Recovering/Resolving]
